FAERS Safety Report 16165373 (Version 1)
Quarter: 2019Q2

REPORT INFORMATION
  Report Type: Spontaneous
  Country: GB (occurrence: GB)
  Receive Date: 20190405
  Receipt Date: 20190405
  Transmission Date: 20190711
  Serious: Yes (Hospitalization, Other)
  Sender: FDA-Public Use
  Company Number: GB-009507513-1904GBR001751

PATIENT
  Age: 94 Year
  Sex: Female
  Weight: 46.72 kg

DRUGS (16)
  1. MICROLAX (SODIUM CITRATE (+) SODIUM LAURYL SULFOACETATE (+) SORBITOL) [Concomitant]
  2. ERTAPENEM SODIUM [Suspect]
     Active Substance: ERTAPENEM SODIUM
     Indication: ARTHRITIS INFECTIVE
     Dosage: 1 GRAM, QD
     Route: 042
     Dates: start: 20190221, end: 20190303
  3. BISOPROLOL FUMARATE. [Concomitant]
     Active Substance: BISOPROLOL FUMARATE
  4. FORTISIP [Concomitant]
     Active Substance: CARBOHYDRATES\FATTY ACIDS\MINERALS\PROTEIN\VITAMINS
  5. OXYNORM [Concomitant]
     Active Substance: OXYCODONE HYDROCHLORIDE
  6. RIVAROXABAN [Concomitant]
     Active Substance: RIVAROXABAN
  7. CHOLECALCIFEROL [Concomitant]
     Active Substance: CHOLECALCIFEROL
  8. MOVICOL [Concomitant]
     Active Substance: POLYETHYLENE GLYCOL 3350\POTASSIUM CHLORIDE\SODIUM BICARBONATE\SODIUM CHLORIDE
  9. ENOXAPARIN SODIUM. [Concomitant]
     Active Substance: ENOXAPARIN SODIUM
  10. ERTAPENEM SODIUM [Suspect]
     Active Substance: ERTAPENEM SODIUM
     Dosage: 1 GRAM, QD
     Route: 042
     Dates: start: 20190221, end: 20190303
  11. CLOPIDOGREL BESYLATE [Concomitant]
     Active Substance: CLOPIDOGREL BESILATE
  12. SANDO-K [Concomitant]
     Active Substance: POTASSIUM BICARBONATE\POTASSIUM CHLORIDE
  13. NYSTATIN. [Concomitant]
     Active Substance: NYSTATIN
  14. NUTRITIONAL SUPPLEMENTS [Concomitant]
     Active Substance: DIETARY SUPPLEMENT
  15. CASSIA (SENNOSIDES) [Concomitant]
     Active Substance: HERBALS\SENNOSIDES
  16. ONDANSETRON HYDROCHLORIDE. [Concomitant]
     Active Substance: ONDANSETRON HYDROCHLORIDE

REACTIONS (2)
  - Hypoglycaemia [Recovered/Resolved]
  - Altered state of consciousness [Recovered/Resolved]

NARRATIVE: CASE EVENT DATE: 20190221
